FAERS Safety Report 10565643 (Version 1)
Quarter: 2014Q4

REPORT INFORMATION
  Report Type: Spontaneous
  Country: US (occurrence: None)
  Receive Date: 20141104
  Receipt Date: 20141104
  Transmission Date: 20150529
  Serious: Yes (Hospitalization)
  Sender: FDA-Public Use
  Company Number: None

PATIENT
  Age: 85 Year
  Sex: Male
  Weight: 64.1 kg

DRUGS (2)
  1. LOSARTAN/HCTZ [Concomitant]
     Active Substance: HYDROCHLOROTHIAZIDE\LOSARTAN
  2. AZITHROMYCIN [Suspect]
     Active Substance: AZITHROMYCIN ANHYDROUS
     Dosage: 2 PILL  X1 THEN 1 TAB /DAY  ORAL
     Route: 048
     Dates: start: 20140421, end: 20140426

REACTIONS (5)
  - Inappropriate antidiuretic hormone secretion [None]
  - Lethargy [None]
  - Idiosyncratic drug reaction [None]
  - Disorientation [None]
  - Hyponatraemia [None]

NARRATIVE: CASE EVENT DATE: 20140427
